FAERS Safety Report 9685898 (Version 1)
Quarter: 2013Q4

REPORT INFORMATION
  Report Type: Spontaneous
  Country: BR (occurrence: BR)
  Receive Date: 20131113
  Receipt Date: 20131113
  Transmission Date: 20140711
  Serious: Yes (Disabling, Other)
  Sender: FDA-Public Use
  Company Number: BR-JNJFOC-20131104408

PATIENT
  Age: 81 Year
  Sex: Female
  Weight: 69 kg

DRUGS (6)
  1. REMICADE [Suspect]
     Indication: RHEUMATOID ARTHRITIS
     Route: 042
     Dates: start: 2013
  2. REMICADE [Suspect]
     Indication: RHEUMATOID ARTHRITIS
     Route: 042
     Dates: start: 2013
  3. LOSARTAN [Concomitant]
     Indication: BLOOD CHOLESTEROL INCREASED
     Route: 065
  4. DILTIAZEM [Concomitant]
     Indication: HYPERTENSION
     Route: 065
  5. DEFLAZACORT [Concomitant]
     Indication: RHEUMATOID ARTHRITIS
     Route: 065
  6. ARAVA [Concomitant]
     Indication: RHEUMATOID ARTHRITIS
     Route: 065

REACTIONS (6)
  - Influenza [Unknown]
  - Bronchitis [Unknown]
  - Uterine infection [Recovered/Resolved]
  - Bedridden [Not Recovered/Not Resolved]
  - Osteoporosis [Unknown]
  - Vaginal discharge [Unknown]
